FAERS Safety Report 8462340-9 (Version None)
Quarter: 2012Q2

REPORT INFORMATION
  Report Type: 
  Country: None (occurrence: None)
  Receive Date: 20120619
  Receipt Date: 20120619
  Transmission Date: 20120825
  Serious: Yes (Other)
  Sender: FDA-Public Use
  Company Number: None

PATIENT
  Sex: Male

DRUGS (1)
  1. CLOPIDOGREL [Suspect]

REACTIONS (2)
  - PRODUCT FORMULATION ISSUE [None]
  - REACTION TO DRUG EXCIPIENTS [None]
